FAERS Safety Report 24640212 (Version 2)
Quarter: 2024Q4

REPORT INFORMATION
  Report Type: Other
  Country: CA (occurrence: CA)
  Receive Date: 20241120
  Receipt Date: 20241204
  Transmission Date: 20250115
  Serious: Yes (Death, Other)
  Sender: CELLTRION
  Company Number: CA-CELLTRION INC.-2024CA028711

PATIENT

DRUGS (10)
  1. RITUXIMAB [Suspect]
     Active Substance: RITUXIMAB
     Indication: Prophylaxis against transplant rejection
     Route: 065
  2. RITUXIMAB [Suspect]
     Active Substance: RITUXIMAB
     Indication: Epstein-Barr virus infection reactivation
  3. RITUXIMAB [Suspect]
     Active Substance: RITUXIMAB
     Indication: Epstein-Barr virus associated lymphoproliferative disorder
  4. PREDNISONE [Suspect]
     Active Substance: PREDNISONE
     Indication: Prophylaxis against transplant rejection
     Route: 065
  5. PREDNISONE [Suspect]
     Active Substance: PREDNISONE
     Indication: Epstein-Barr virus infection reactivation
  6. PREDNISONE [Suspect]
     Active Substance: PREDNISONE
     Indication: Graft versus host disease
  7. BAMLANIVIMAB [Concomitant]
     Active Substance: BAMLANIVIMAB
  8. BRENTUXIMAB VEDOTIN [Concomitant]
     Active Substance: BRENTUXIMAB VEDOTIN
     Route: 065
  9. BLEOMYCIN;DACARBAZINE;DOXORUBICIN HYDROCHLORIDE;VINBLASTINE SULFATE [Concomitant]
     Indication: Hodgkin^s disease
     Route: 065
  10. CISPLATIN;DEXAMETHASONE;GEMCITABINE [Concomitant]
     Indication: Hodgkin^s disease
     Route: 065

REACTIONS (10)
  - Death [Fatal]
  - Renal impairment [Fatal]
  - Cardiorenal syndrome [Fatal]
  - Lung consolidation [Fatal]
  - Lung infiltration [Fatal]
  - Respiratory failure [Fatal]
  - COVID-19 [Fatal]
  - Upper respiratory tract infection [Fatal]
  - Epstein-Barr virus infection [Fatal]
  - Off label use [Fatal]
